FAERS Safety Report 9249096 (Version 6)
Quarter: 2014Q1

REPORT INFORMATION
  Report Type: Report from Study
  Country: US (occurrence: US)
  Receive Date: 20130423
  Receipt Date: 20140127
  Transmission Date: 20141002
  Serious: Yes (Life-Threatening, Hospitalization)
  Sender: FDA-Public Use
  Company Number: US-ACTELION-A-NJ2013-82384

PATIENT
  Age: 43 Year
  Sex: Female

DRUGS (6)
  1. VENTAVIS [Suspect]
     Indication: PULMONARY ARTERIAL HYPERTENSION
     Dosage: 2.5 MCG, 5XDAY
     Route: 055
     Dates: start: 2008
  2. VENTAVIS [Suspect]
     Dosage: 5 MCG, 5XDAY
     Route: 055
  3. TRACLEER [Suspect]
     Indication: PULMONARY ARTERIAL HYPERTENSION
     Dosage: UNK
     Route: 048
  4. SILDENAFIL [Concomitant]
  5. COUMADIN [Concomitant]
  6. PLAQUENIL [Concomitant]

REACTIONS (8)
  - Septic shock [Recovering/Resolving]
  - Cellulitis streptococcal [Recovering/Resolving]
  - Influenza [Recovering/Resolving]
  - Streptococcal sepsis [Recovering/Resolving]
  - Systemic lupus erythematosus [Recovering/Resolving]
  - Impaired healing [Recovering/Resolving]
  - Wound [Recovering/Resolving]
  - Fall [Unknown]
